FAERS Safety Report 16287687 (Version 2)
Quarter: 2021Q1

REPORT INFORMATION
  Report Type: Spontaneous
  Country: US (occurrence: US)
  Receive Date: 20190508
  Receipt Date: 20210215
  Transmission Date: 20210419
  Serious: Yes (Hospitalization, Disabling, Other)
  Sender: FDA-Public Use
  Company Number: US-ASTRAZENECA-2019SE62696

PATIENT
  Age: 37 Year
  Sex: Male
  Weight: 86.2 kg

DRUGS (61)
  1. ALBUTEROL. [Concomitant]
     Active Substance: ALBUTEROL
     Indication: BRONCHOSPASM
     Route: 065
     Dates: start: 20171114, end: 20171204
  2. AMOXICILLIN. [Concomitant]
     Active Substance: AMOXICILLIN
     Indication: INFECTION
     Route: 065
     Dates: start: 20140117, end: 20160822
  3. OXYCODONE [Concomitant]
     Active Substance: OXYCODONE
  4. BENZONATATE. [Concomitant]
     Active Substance: BENZONATATE
  5. EPOGEN [Concomitant]
     Active Substance: ERYTHROPOIETIN
  6. GENTAMICIN. [Concomitant]
     Active Substance: GENTAMICIN
  7. POTASSIUM CHLORIDE. [Concomitant]
     Active Substance: POTASSIUM CHLORIDE
  8. FLUCONAZOLE. [Concomitant]
     Active Substance: FLUCONAZOLE
  9. TRAZODONE [Concomitant]
     Active Substance: TRAZODONE HYDROCHLORIDE
  10. NITROSTAT [Concomitant]
     Active Substance: NITROGLYCERIN
  11. SENNA [Concomitant]
     Active Substance: SENNA LEAF\SENNOSIDES\SENNOSIDES A AND B
  12. PEPCID [Concomitant]
     Active Substance: FAMOTIDINE
  13. MYLANTA [Concomitant]
     Active Substance: ALUMINUM HYDROXIDE\DIMETHICONE\MAGNESIUM HYDROXIDE
  14. NITROGLYCERIN. [Concomitant]
     Active Substance: NITROGLYCERIN
  15. ESCITALOPRAM [Concomitant]
     Active Substance: ESCITALOPRAM OXALATE
  16. MOMETASONE [Concomitant]
     Active Substance: MOMETASONE
  17. CLONIDINE. [Concomitant]
     Active Substance: CLONIDINE
  18. NEXIUM [Suspect]
     Active Substance: ESOMEPRAZOLE MAGNESIUM
     Indication: GASTROOESOPHAGEAL REFLUX DISEASE
     Route: 048
     Dates: start: 2001, end: 2017
  19. NEXIUM [Suspect]
     Active Substance: ESOMEPRAZOLE MAGNESIUM
     Indication: GASTROOESOPHAGEAL REFLUX DISEASE
     Dosage: GENERIC
     Route: 065
     Dates: start: 2016
  20. PROTONIX [Suspect]
     Active Substance: PANTOPRAZOLE SODIUM
     Indication: GASTROOESOPHAGEAL REFLUX DISEASE
     Route: 065
     Dates: start: 2000
  21. PROTONIX [Suspect]
     Active Substance: PANTOPRAZOLE SODIUM
     Indication: GASTROOESOPHAGEAL REFLUX DISEASE
     Route: 065
     Dates: start: 2000
  22. ISOSORBIDE MONONITRATE. [Concomitant]
     Active Substance: ISOSORBIDE MONONITRATE
     Indication: CARDIAC FAILURE
     Route: 065
     Dates: start: 20130814, end: 20180602
  23. TYLENOL [Concomitant]
     Active Substance: ACETAMINOPHEN
     Indication: PAIN
     Route: 065
     Dates: start: 199001
  24. CALCIUM ACETATE. [Concomitant]
     Active Substance: CALCIUM ACETATE
  25. SPIRIVA [Concomitant]
     Active Substance: TIOTROPIUM BROMIDE MONOHYDRATE
  26. BETAMETHASONE. [Concomitant]
     Active Substance: BETAMETHASONE
  27. LISINOPRIL. [Concomitant]
     Active Substance: LISINOPRIL
     Indication: HYPERTENSION
     Route: 065
     Dates: start: 20160205
  28. VITAMIN D [Concomitant]
     Active Substance: VITAMIN D NOS
     Indication: BONE DISORDER
  29. LANTUS [Concomitant]
     Active Substance: INSULIN GLARGINE
  30. LIDOCAINE. [Concomitant]
     Active Substance: LIDOCAINE
  31. CEPHALEXIN. [Concomitant]
     Active Substance: CEPHALEXIN
  32. LEVOFLOXACIN. [Concomitant]
     Active Substance: LEVOFLOXACIN
  33. BISACODYL. [Concomitant]
     Active Substance: BISACODYL
  34. CALCITRIOL. [Concomitant]
     Active Substance: CALCITRIOL
  35. ZOLPIDEM [Concomitant]
     Active Substance: ZOLPIDEM TARTRATE
  36. PRILOSEC [Suspect]
     Active Substance: OMEPRAZOLE MAGNESIUM
     Indication: GASTROOESOPHAGEAL REFLUX DISEASE
     Dosage: GENERIC
     Route: 065
     Dates: end: 2017
  37. PREVACID [Suspect]
     Active Substance: LANSOPRAZOLE
     Route: 065
  38. PEPTO?BISMOL [Concomitant]
     Active Substance: BISMUTH SUBSALICYLATE
  39. ROLAIDS [Concomitant]
     Active Substance: CALCIUM CARBONATE\MAGNESIUM HYDROXIDE
  40. AMOXICILLIN. [Concomitant]
     Active Substance: AMOXICILLIN
  41. CALCITRIOL. [Concomitant]
     Active Substance: CALCITRIOL
  42. DOCUSATE SODIUM. [Concomitant]
     Active Substance: DOCUSATE SODIUM
  43. DULCOLAX NOS [Concomitant]
     Active Substance: BISACODYL OR DOCUSATE SODIUM
  44. CIPRODEX [Concomitant]
     Active Substance: CIPROFLOXACIN HYDROCHLORIDE\DEXAMETHASONE
  45. TRAMADOL. [Concomitant]
     Active Substance: TRAMADOL
  46. ONDANSETRON [Concomitant]
     Active Substance: ONDANSETRON
  47. LOSARTAN. [Concomitant]
     Active Substance: LOSARTAN
  48. IPRATROPIUM [Concomitant]
     Active Substance: IPRATROPIUM
  49. CLOPIDOGREL [Concomitant]
     Active Substance: CLOPIDOGREL BISULFATE
  50. IBUPROFEN. [Concomitant]
     Active Substance: IBUPROFEN
     Indication: HEADACHE
     Route: 065
     Dates: start: 199001
  51. LACTULOSE. [Concomitant]
     Active Substance: LACTULOSE
  52. GENTAMICIN. [Concomitant]
     Active Substance: GENTAMICIN
  53. NYSTATIN. [Concomitant]
     Active Substance: NYSTATIN
  54. PRILOSEC [Suspect]
     Active Substance: OMEPRAZOLE MAGNESIUM
     Indication: GASTROOESOPHAGEAL REFLUX DISEASE
     Route: 048
     Dates: start: 1990
  55. PREDNISONE. [Concomitant]
     Active Substance: PREDNISONE
     Indication: INFLAMMATION
     Route: 065
     Dates: start: 20080121, end: 20151021
  56. BENADRYL [Concomitant]
     Active Substance: DIPHENHYDRAMINE HYDROCHLORIDE
     Indication: MULTIPLE ALLERGIES
     Route: 065
     Dates: start: 199001
  57. PEPCID AC [Concomitant]
     Active Substance: FAMOTIDINE
  58. TUMS [Concomitant]
     Active Substance: CALCIUM CARBONATE
  59. AZITHROMYCIN ANHYDROUS. [Concomitant]
     Active Substance: AZITHROMYCIN ANHYDROUS
  60. DOXYCYCLINE. [Concomitant]
     Active Substance: DOXYCYCLINE
  61. CYCLOBENZAPRINE. [Concomitant]
     Active Substance: CYCLOBENZAPRINE

REACTIONS (4)
  - Renal failure [Not Recovered/Not Resolved]
  - Chronic kidney disease [Not Recovered/Not Resolved]
  - End stage renal disease [Not Recovered/Not Resolved]
  - Acute kidney injury [Not Recovered/Not Resolved]

NARRATIVE: CASE EVENT DATE: 2002
